FAERS Safety Report 5321895-3 (Version None)
Quarter: 2007Q2

REPORT INFORMATION
  Report Type: 
  Country: None (occurrence: None)
  Receive Date: 20070510
  Receipt Date: 20070508
  Transmission Date: 20071010
  Serious: Yes (Hospitalization)
  Sender: FDA-Public Use
  Company Number: CM-MERCK-0705USA01683

PATIENT
  Age: 26 Year
  Sex: Male

DRUGS (1)
  1. STROMECTOL [Suspect]
     Route: 048
     Dates: start: 20070331

REACTIONS (5)
  - ARTHRALGIA [None]
  - ASTHENIA [None]
  - FREQUENT BOWEL MOVEMENTS [None]
  - PYREXIA [None]
  - SOMNOLENCE [None]
